FAERS Safety Report 11266832 (Version 1)
Quarter: 2015Q3

REPORT INFORMATION
  Report Type: Spontaneous
  Country: CN (occurrence: CN)
  Receive Date: 20150713
  Receipt Date: 20150713
  Transmission Date: 20151125
  Serious: Yes (Other)
  Sender: FDA-Public Use
  Company Number: CN-BAYER-2015-371956

PATIENT
  Sex: Female

DRUGS (1)
  1. MIRENA [Suspect]
     Active Substance: LEVONORGESTREL
     Indication: ADENOMYOSIS
     Dosage: 20 MCG/24HR, CONT
     Route: 015
     Dates: start: 2012

REACTIONS (9)
  - Post procedural haemorrhage [None]
  - Off label use of device [None]
  - Hypomenorrhoea [None]
  - Menstruation irregular [None]
  - Menorrhagia [None]
  - Vaginal discharge [None]
  - Loop electrosurgical excision procedure [None]
  - Device dislocation [None]
  - Polymenorrhagia [None]

NARRATIVE: CASE EVENT DATE: 2012
